FAERS Safety Report 9379732 (Version 1)
Quarter: 2013Q2

REPORT INFORMATION
  Report Type: Spontaneous
  Country: FR (occurrence: None)
  Receive Date: 20130627
  Receipt Date: 20130627
  Transmission Date: 20140414
  Serious: Yes (Other)
  Sender: FDA-Public Use
  Company Number: FK201302158

PATIENT
  Age: 74 Year
  Sex: Male

DRUGS (6)
  1. LEVETIRACETAM [Suspect]
     Indication: EPILEPSY
     Route: 042
  2. ZOLPIDEM(ZOLPIDEM) [Concomitant]
  3. PHENOBARBITAL(PHENOBARBITAL) [Concomitant]
  4. ATORVASTATINE(ATORVASTATIN) [Concomitant]
  5. ACEN000UMAROL(ACENOCOUMAROL) [Concomitant]
  6. ALPRAZOLAM(ALPRAZOLAM) (ALPRAZOLAM) [Concomitant]

REACTIONS (1)
  - Hypoglycaemia [None]
